FAERS Safety Report 10729488 (Version 1)
Quarter: 2015Q1

REPORT INFORMATION
  Report Type: Spontaneous
  Country: PR (occurrence: None)
  Receive Date: 20150121
  Receipt Date: 20150121
  Transmission Date: 20150721
  Serious: No
  Sender: FDA-Public Use
  Company Number: None

PATIENT
  Sex: Female
  Weight: 52.7 kg

DRUGS (5)
  1. PROPRANOLOL 10 [Concomitant]
  2. IRON [Concomitant]
     Active Substance: IRON
  3. PEGASYS [Suspect]
     Active Substance: PEGINTERFERON ALFA-2A
     Indication: HEPATITIS C
     Dosage: 180 MCG ONCE A WEEK SQ
     Dates: start: 20140912
  4. RIBASPHERE [Suspect]
     Active Substance: RIBAVIRIN
     Indication: HEPATITIS C
     Dosage: 400-400 EVERY 12 HOURS PO
     Route: 048
     Dates: start: 20140912
  5. VITAMIN E [Concomitant]
     Active Substance: .ALPHA.-TOCOPHEROL

REACTIONS (8)
  - Pruritus [None]
  - Speech disorder [None]
  - Asthenia [None]
  - Fatigue [None]
  - Headache [None]
  - Haemoglobin decreased [None]
  - Platelet count decreased [None]
  - Chest pain [None]
